FAERS Safety Report 10591342 (Version 2)
Quarter: 2014Q4

REPORT INFORMATION
  Report Type: Report from Study
  Country: US (occurrence: US)
  Receive Date: 20141118
  Receipt Date: 20141211
  Transmission Date: 20150529
  Serious: Yes (Hospitalization)
  Sender: FDA-Public Use
  Company Number: GXBR2014US002432

PATIENT
  Age: 44 Year
  Sex: Female
  Weight: 107.94 kg

DRUGS (26)
  1. MAGNESIUM [Concomitant]
     Active Substance: MAGNESIUM
     Dosage: UNK DF, UNK
     Dates: start: 2013
  2. VITAMIIN C [Concomitant]
     Active Substance: ASCORBIC ACID
     Dosage: UNK DF, UNK
     Dates: start: 2013
  3. LISINOPRIL TABLETS, USP [Suspect]
     Active Substance: LISINOPRIL
     Indication: HYPERTENSION
     Dosage: 10 MG, QD
     Route: 048
     Dates: start: 20140912, end: 20140921
  4. VITAMIN B12 [Concomitant]
     Active Substance: CYANOCOBALAMIN
     Dosage: UNK DF, UNK
     Dates: start: 2013
  5. POTASSIUM [Concomitant]
     Active Substance: POTASSIUM
     Dosage: UNK DF, UNK
     Dates: start: 2013
  6. OXYCODONE [Concomitant]
     Active Substance: OXYCODONE
     Dosage: UNK MG, UNK
     Dates: start: 20140910
  7. SILYBUM MARIANUM [Concomitant]
     Dosage: UNK DF, UNK
     Dates: start: 2013
  8. TOCOPHEROL [Concomitant]
     Active Substance: TOCOPHEROL
     Dosage: UNK DF, UNK
     Dates: start: 2013
  9. FOLIC ACID. [Concomitant]
     Active Substance: FOLIC ACID
     Dosage: UNK DF, UNK
     Dates: start: 2013
  10. HCTZ [Concomitant]
     Active Substance: HYDROCHLOROTHIAZIDE
     Dosage: UNK MG, UNK
     Dates: start: 20140826
  11. FLEXERIL [Concomitant]
     Active Substance: CYCLOBENZAPRINE HYDROCHLORIDE
     Dosage: UNK MG, UNK
     Dates: start: 201402
  12. PHENERGAN [Concomitant]
     Active Substance: PROMETHAZINE HYDROCHLORIDE
     Dosage: UNK DF, UNK
     Dates: start: 2000
  13. VALIUM [Concomitant]
     Active Substance: DIAZEPAM
     Dosage: UNK DF, UNK
     Dates: start: 2000
  14. DOLOMITE [Concomitant]
     Dosage: UNK DF, UNK
     Dates: start: 2013
  15. DULOXETINE [Concomitant]
     Active Substance: DULOXETINE
     Dosage: UNK MG, UNK
     Dates: start: 20140910
  16. RANITIDINE [Concomitant]
     Active Substance: RANITIDINE\RANITIDINE HYDROCHLORIDE
     Dosage: UNK MG, UNK
     Dates: start: 2000
  17. PROTONIX [Concomitant]
     Active Substance: PANTOPRAZOLE SODIUM
     Dosage: UNK MG, UNK
     Dates: start: 2013
  18. CALCIUM [Concomitant]
     Active Substance: CALCIUM
     Dosage: UNK DF, UNK
  19. NALDEMEDINE [Suspect]
     Active Substance: NALDEMEDINE
     Indication: CONSTIPATION
     Dosage: UNK DF, UNK
     Route: 065
     Dates: start: 20140723
  20. VITAMIN D3 [Concomitant]
     Active Substance: CHOLECALCIFEROL
     Dosage: UNK DF, UNK
     Dates: start: 2013
  21. ECHINACEA PURPUREA [Concomitant]
     Active Substance: ECHINACEA PURPUREA
     Dosage: UNK DF, UNK
     Dates: start: 2013
  22. BIOTIN [Concomitant]
     Active Substance: BIOTIN
     Dosage: UNK DF, UNK
     Dates: start: 2013
  23. ZINC [Concomitant]
     Active Substance: ZINC\ZINC CHLORIDE
     Dosage: UNK DF, UNK
     Dates: start: 2013
  24. FENTANYL. [Concomitant]
     Active Substance: FENTANYL
     Dosage: UNK DF, UNK
     Dates: start: 20140910
  25. COQ 10 [Concomitant]
     Active Substance: UBIDECARENONE
     Dosage: UNK DF, UNK
     Dates: start: 2013
  26. OXYBUTYNIN [Concomitant]
     Active Substance: OXYBUTYNIN
     Dosage: UNK DF, UNK
     Dates: start: 2011

REACTIONS (3)
  - Oedema peripheral [Recovered/Resolved]
  - Cellulitis [Recovered/Resolved]
  - Hypersensitivity [Recovered/Resolved]

NARRATIVE: CASE EVENT DATE: 20140919
